FAERS Safety Report 22279514 (Version 2)
Quarter: 2023Q2

REPORT INFORMATION
  Report Type: Spontaneous
  Country: AU (occurrence: AU)
  Receive Date: 20230503
  Receipt Date: 20230504
  Transmission Date: 20230721
  Serious: Yes (Other)
  Sender: FDA-Public Use
  Company Number: AU-JNJFOC-20230458898

PATIENT
  Age: 44 Year
  Sex: Male

DRUGS (2)
  1. IBUPROFEN [Suspect]
     Active Substance: IBUPROFEN
     Indication: Toothache
     Dosage: IBUPROFEN TOTAL 50 TABS OVER THE WEEKEND FOR TOOTHACHE
     Route: 065
     Dates: end: 20210328
  2. ACETAMINOPHEN [Suspect]
     Active Substance: ACETAMINOPHEN
     Indication: Toothache
     Dosage: PARACETAMOL TOTAL 50 TABS OVER THE WEEKEND FOR TOOTHACHE
     Route: 065
     Dates: end: 20210328

REACTIONS (6)
  - Gamma-glutamyltransferase increased [Unknown]
  - Abdominal pain upper [Unknown]
  - Nausea [Unknown]
  - Alanine aminotransferase increased [Unknown]
  - Aspartate aminotransferase increased [Unknown]
  - Intentional overdose [Unknown]

NARRATIVE: CASE EVENT DATE: 20210401
